FAERS Safety Report 19586521 (Version 2)
Quarter: 2021Q3

REPORT INFORMATION
  Report Type: Spontaneous
  Country: US (occurrence: US)
  Receive Date: 20210721
  Receipt Date: 20210802
  Transmission Date: 20211014
  Serious: No
  Sender: FDA-Public Use
  Company Number: US-DSJP-DSU-2021-122058

PATIENT
  Sex: Female

DRUGS (2)
  1. EVOXAC [Suspect]
     Active Substance: CEVIMELINE HYDROCHLORIDE
     Indication: DRY MOUTH
     Dosage: 1 DF, QD (ONE CAPSULE EVERY EVENING)
     Route: 065
     Dates: start: 2005
  2. CEVIMELINE HYDROCHLORIDE HYDRATE [Suspect]
     Active Substance: CEVIMELINE HYDROCHLORIDE
     Indication: DRY MOUTH
     Dosage: 1 DF, QD (ONE CAPSULE EVERY EVENING)
     Route: 065
     Dates: start: 2009

REACTIONS (3)
  - Heart rate increased [Recovered/Resolved]
  - Product availability issue [Unknown]
  - Off label use [Unknown]

NARRATIVE: CASE EVENT DATE: 2005
